FAERS Safety Report 23738397 (Version 2)
Quarter: 2024Q3

REPORT INFORMATION
  Report Type: Report from Study
  Country: US (occurrence: US)
  Receive Date: 20240412
  Receipt Date: 20240729
  Transmission Date: 20241017
  Serious: Yes (Other)
  Sender: BAYER
  Company Number: US-BAYER-2024A049177

PATIENT
  Age: 68 Year
  Sex: Male

DRUGS (1)
  1. NUBEQA [Suspect]
     Active Substance: DAROLUTAMIDE
     Indication: Prostate cancer
     Dosage: 600 MG, BID
     Route: 048
     Dates: start: 20230512

REACTIONS (6)
  - Deafness unilateral [Unknown]
  - Photosensitivity reaction [Unknown]
  - Sunburn [Unknown]
  - Lacrimation increased [Recovering/Resolving]
  - Vertigo [Unknown]
  - Vision blurred [Recovering/Resolving]
